FAERS Safety Report 8488578-2 (Version None)
Quarter: 2012Q3

REPORT INFORMATION
  Report Type: 
  Country: None (occurrence: None)
  Receive Date: 20120705
  Receipt Date: 20120626
  Transmission Date: 20120928
  Serious: Yes (Hospitalization)
  Sender: FDA-Public Use
  Company Number: GB-UCBSA-060658

PATIENT
  Age: 74 Year
  Sex: Female

DRUGS (2)
  1. CIMZIA [Suspect]
     Dates: start: 20110301, end: 20111101
  2. ENBREL-GB [Concomitant]
     Indication: RHEUMATOID ARTHRITIS

REACTIONS (3)
  - SPEECH DISORDER [None]
  - DYSPNOEA [None]
  - CHEST PAIN [None]
